FAERS Safety Report 4869098-0 (Version None)
Quarter: 2005Q4

REPORT INFORMATION
  Report Type: 
  Country: None (occurrence: None)
  Receive Date: 20051227
  Receipt Date: 20050627
  Transmission Date: 20060501
  Serious: Yes (Disabling)
  Sender: FDA-Public Use
  Company Number: GXKR2005CA01827

PATIENT
  Sex: Female

DRUGS (1)
  1. CYANOCOBALAMIN [Suspect]

REACTIONS (23)
  - ABDOMINAL PAIN UPPER [None]
  - ARTHRALGIA [None]
  - BLOOD PRESSURE INCREASED [None]
  - CHRONIC FATIGUE SYNDROME [None]
  - DEAFNESS [None]
  - DEPRESSION [None]
  - DISTURBANCE IN ATTENTION [None]
  - DRY MOUTH [None]
  - GASTROINTESTINAL PAIN [None]
  - GENERALISED OEDEMA [None]
  - HEADACHE [None]
  - LYMPHADENOPATHY [None]
  - MEMORY IMPAIRMENT [None]
  - MENTAL DISORDER [None]
  - MUSCLE SPASMS [None]
  - PARAESTHESIA [None]
  - PRURITUS [None]
  - RENAL PAIN [None]
  - SINUS HEADACHE [None]
  - SOMNOLENCE [None]
  - TENDERNESS [None]
  - THERAPEUTIC RESPONSE UNEXPECTED WITH DRUG SUBSTITUTION [None]
  - VISION BLURRED [None]
